FAERS Safety Report 10204948 (Version 1)
Quarter: 2014Q2

REPORT INFORMATION
  Report Type: Spontaneous
  Country: US (occurrence: US)
  Receive Date: 20140529
  Receipt Date: 20140529
  Transmission Date: 20141212
  Serious: No
  Sender: FDA-Public Use
  Company Number: US-GILEAD-2014-0103776

PATIENT
  Age: 67 Year
  Sex: Female

DRUGS (5)
  1. RANEXA [Suspect]
     Indication: PRODUCT USED FOR UNKNOWN INDICATION
     Dosage: 500 MG, BID
     Route: 065
     Dates: start: 201404
  2. HYDROCHLOROTHIAZIDE [Concomitant]
  3. LEVOTHYROXINE [Concomitant]
  4. PREVACID [Concomitant]
  5. TOPROL [Concomitant]

REACTIONS (1)
  - Rash [Unknown]
